FAERS Safety Report 5349389-X (Version None)
Quarter: 2007Q2

REPORT INFORMATION
  Report Type: 
  Country: None (occurrence: None)
  Receive Date: 20070504
  Receipt Date: 20061016
  Transmission Date: 20071010
  Serious: Yes (Other)
  Sender: FDA-Public Use
  Company Number: PHEH2006US04272

PATIENT
  Age: 59 Year
  Sex: Male
  Weight: 121.1 kg

DRUGS (3)
  1. DIOVAN HCT [Suspect]
     Indication: HYPERTENSION
     Dosage: 160MG VAL (25 MG HCT, QD
     Dates: start: 20060307, end: 20060314
  2. NAPROXEN [Concomitant]
  3. NORFLEX [Concomitant]

REACTIONS (3)
  - HYPERSENSITIVITY [None]
  - RASH GENERALISED [None]
  - STEVENS-JOHNSON SYNDROME [None]
